FAERS Safety Report 8972540 (Version 1)
Quarter: 2012Q4

REPORT INFORMATION
  Report Type: Spontaneous
  Country: BR (occurrence: None)
  Receive Date: 20121207
  Receipt Date: 20121207
  Transmission Date: 20130627
  Serious: Yes (Hospitalization)
  Sender: FDA-Public Use
  Company Number: DSJ-2012-06684

PATIENT
  Age: 8 Decade
  Sex: Female

DRUGS (6)
  1. BENICAR ANLO (OLMESARTAN MEDOXOMIL, AMLODIPINE BESILATE) (TABLET) (OLMESARTAN MEDOXOMIL, AMLODIPINE) [Suspect]
     Indication: HYPERTENSION
     Route: 048
     Dates: start: 2011, end: 2011
  2. BENICAR ANLO (OLMESARTAN MEDOXOMIL, AMLODIPINE BESILATE) (TABLET) (OLMESARTAN MEDOXOMIL, AMLODIPINE) [Suspect]
     Indication: HYPERTENSION
     Dosage: 20/5 mg (1 in 1 D), Per oral
     Route: 048
     Dates: start: 2011
  3. BENICAR ANLO (OLMESARTAN MEDOXOMIL, AMLODIPINE BESILATE) (TABLET) (OLMESARTAN MEDOXOMIL, AMLODIPINE) [Suspect]
     Indication: HYPERTENSION
     Route: 048
  4. ATENOLOL [Concomitant]
  5. INDAPAMIDE [Concomitant]
  6. VENLAFAXINE [Concomitant]

REACTIONS (4)
  - Hypotension [None]
  - Pain in extremity [None]
  - Depression [None]
  - Myalgia [None]
